FAERS Safety Report 6202874-0 (Version None)
Quarter: 2009Q2

REPORT INFORMATION
  Report Type: 
  Country: None (occurrence: None)
  Receive Date: 20090520
  Receipt Date: 20090515
  Transmission Date: 20091009
  Serious: Yes (Life-Threatening)
  Sender: FDA-Public Use
  Company Number: 09GB001371

PATIENT
  Age: 60 Year
  Sex: Female

DRUGS (22)
  1. LORATADINE [Suspect]
     Indication: PRURITUS GENERALISED
     Dosage: 10 MG, QD, ORAL
     Route: 048
     Dates: start: 20090423, end: 20090430
  2. RAMIPRIL [Suspect]
     Indication: HYPERTENSION
     Dosage: 2.5 MG, QD, ORAL
     Route: 048
     Dates: start: 20090423, end: 20090430
  3. AMOXICILLIN TRIHYDRATE [Concomitant]
  4. CETOSTEARYL ALCOHOL (CETOSTEARYL ALCOHOL) [Concomitant]
  5. ASPIRIN [Concomitant]
  6. BECLOMETHASONE DIPROPIONATE [Concomitant]
  7. BENDROFLUMETHIAZIDE (BENDROFLUMETHIAZIDE) [Concomitant]
  8. CETIRIZINE HCL [Concomitant]
  9. CODEINE PHOSPHATE (CODEINE PHOSPHATE) [Concomitant]
  10. DAKTACORT (HYDROCORTISONE, MICONAZOLE NITRATE) [Concomitant]
  11. DICLOFENAC SODIUM [Concomitant]
  12. FLOXACILLIN SODIUM [Concomitant]
  13. GABAPENTIN [Concomitant]
  14. GASTROCOTE (ALGINIC ACID, ALUMINIUM HYDROXIDE GEL, DRIED, MAGNESIUM TR [Concomitant]
  15. HYPROMELLOSE (HYPROMELLOSE) [Concomitant]
  16. KLIOFEM (ESTRADIOL, NORETHISTERONE ACETATE) [Concomitant]
  17. OMEPRAZOLE [Concomitant]
  18. ACETAMINOPHEN [Concomitant]
  19. PEPPERMINT OIL (MENTHA X PIPERITA OIL) [Concomitant]
  20. SALBUTAMOL (SALBUTAMOL SULFATE) [Concomitant]
  21. THIAMINE (THIAMINE) [Concomitant]
  22. VITAMIN B COMPLEX (VITAMIN-B-KOMPLEX STANDARD) [Concomitant]

REACTIONS (2)
  - ANGIOEDEMA [None]
  - DYSPNOEA [None]
